FAERS Safety Report 11073346 (Version 1)
Quarter: 2015Q2

REPORT INFORMATION
  Report Type: Spontaneous
  Country: TR (occurrence: TR)
  Receive Date: 20150428
  Receipt Date: 20150428
  Transmission Date: 20150821
  Serious: Yes (Other)
  Sender: FDA-Public Use
  Company Number: TR-JNJFOC-20150418460

PATIENT
  Age: 52 Year
  Sex: Male

DRUGS (1)
  1. IBRUTINIB [Suspect]
     Active Substance: IBRUTINIB
     Indication: UNEVALUABLE EVENT
     Route: 048

REACTIONS (2)
  - Subdural haematoma [Unknown]
  - Headache [Unknown]
